FAERS Safety Report 8691597 (Version 2)
Quarter: 2013Q4

REPORT INFORMATION
  Report Type: Spontaneous
  Country: DK (occurrence: DK)
  Receive Date: 20120730
  Receipt Date: 20131108
  Transmission Date: 20140711
  Serious: Yes (Hospitalization, Other)
  Sender: FDA-Public Use
  Company Number: DK-009507513-1207DNK006111

PATIENT
  Age: 19 Year
  Sex: Male
  Weight: 60 kg

DRUGS (6)
  1. NOXAFIL [Suspect]
     Indication: ANTIFUNGAL PROPHYLAXIS
     Dosage: 200 MG, TID
     Route: 048
     Dates: start: 20120427, end: 20120515
  2. ONCOVIN [Interacting]
     Dosage: 2 MG, QW
     Dates: start: 20120417, end: 20120501
  3. GLIVEC [Concomitant]
     Dosage: UNK
     Dates: start: 20120418
  4. PREDNISOLONE [Concomitant]
     Dosage: UNK
     Dates: start: 20120417, end: 20120518
  5. MEROPENEM [Concomitant]
     Dosage: UNK
     Dates: start: 20120505, end: 20120517
  6. VANCOMYCIN [Concomitant]
     Dosage: UNK
     Dates: start: 20120505, end: 20120517

REACTIONS (4)
  - Drug interaction [Unknown]
  - Neurotoxicity [Unknown]
  - Pain in extremity [Unknown]
  - Hypokinesia [Unknown]
